FAERS Safety Report 9753017 (Version 1)
Quarter: 2013Q4

REPORT INFORMATION
  Report Type: Spontaneous
  Country: US (occurrence: None)
  Receive Date: 20131211
  Receipt Date: 20131211
  Transmission Date: 20140711
  Serious: Yes (Other)
  Sender: FDA-Public Use
  Company Number: AUR-APL-2013-10267

PATIENT
  Age: 69 Year
  Sex: Female
  Weight: 77.1 kg

DRUGS (12)
  1. METFORMIN [Suspect]
  2. SIMVASTATIN [Suspect]
  3. PREMARIN [Suspect]
     Route: 067
  4. LEVOTHYROXINE SODIUM [Suspect]
  5. CENTRUM SILVER [Suspect]
  6. LANTUS [Suspect]
  7. DIOVAN [Suspect]
  8. AMITIZA [Suspect]
  9. ASPIRIN [Suspect]
  10. FIBER LAX [Suspect]
  11. GLAUCOSTAT [Suspect]
  12. LIPOFLAVONOID [Suspect]

REACTIONS (12)
  - Vulvovaginal burning sensation [None]
  - Vulvovaginal discomfort [None]
  - Vulvovaginal dryness [None]
  - Vulvovaginal pain [None]
  - Headache [None]
  - Dyspnoea [None]
  - Abdominal pain [None]
  - Dizziness [None]
  - Dysuria [None]
  - Muscular weakness [None]
  - Weight decreased [None]
  - Colitis [None]
